FAERS Safety Report 6521830-6 (Version None)
Quarter: 2009Q4

REPORT INFORMATION
  Report Type: 
  Country: None (occurrence: None)
  Receive Date: 20091229
  Receipt Date: 20091229
  Transmission Date: 20100525
  Serious: Yes (Life-Threatening, Hospitalization)
  Sender: FDA-Public Use
  Company Number: None

PATIENT
  Age: 26 Year
  Sex: Male
  Weight: 61.2 kg

DRUGS (1)
  1. TYLENOL-500 [Suspect]
     Indication: BACK PAIN
     Dosage: 5GRAMS PO
     Route: 048
     Dates: start: 20091025

REACTIONS (6)
  - ABDOMINAL PAIN [None]
  - DIZZINESS [None]
  - INTERNATIONAL NORMALISED RATIO INCREASED [None]
  - MEDICATION ERROR [None]
  - NAUSEA [None]
  - OVERDOSE [None]
